FAERS Safety Report 6065754-X (Version None)
Quarter: 2009Q1

REPORT INFORMATION
  Report Type: 
  Country: None (occurrence: None)
  Receive Date: 20090202
  Receipt Date: 20090123
  Transmission Date: 20090719
  Serious: Yes (Hospitalization)
  Sender: FDA-Public Use
  Company Number: KV200900139

PATIENT
  Sex: Male

DRUGS (1)
  1. HYDROMORPHONE HYDROCHLORIDE(HYDROMORPHONE HYDROCHLORIDE) TABLET, 2MG [Suspect]
     Indication: PAIN
     Dosage: 2 MG, Q4H PRN, ORAL
     Route: 048
     Dates: start: 20081121

REACTIONS (1)
  - DYSPNOEA [None]
